FAERS Safety Report 25046138 (Version 2)
Quarter: 2025Q2

REPORT INFORMATION
  Report Type: Report from Study
  Country: CA (occurrence: CA)
  Receive Date: 20250306
  Receipt Date: 20250610
  Transmission Date: 20250717
  Serious: Yes (Other)
  Sender: TAKEDA
  Company Number: CA-TAKEDA-2023TUS115148

PATIENT
  Sex: Female

DRUGS (7)
  1. VEDOLIZUMAB [Suspect]
     Active Substance: VEDOLIZUMAB
     Indication: Crohn^s disease
  2. VEDOLIZUMAB [Suspect]
     Active Substance: VEDOLIZUMAB
  3. VEDOLIZUMAB [Suspect]
     Active Substance: VEDOLIZUMAB
  4. MIDAZOLAM [Concomitant]
     Active Substance: MIDAZOLAM
  5. MIDAZOLAM [Concomitant]
     Active Substance: MIDAZOLAM
  6. FENTANYL [Concomitant]
     Active Substance: FENTANYL
  7. BUTYLSCOPOLAMINE BROMIDE [Concomitant]
     Active Substance: BUTYLSCOPOLAMINE BROMIDE

REACTIONS (4)
  - Crohn^s disease [Unknown]
  - Anal incontinence [Not Recovered/Not Resolved]
  - Abdominal pain [Unknown]
  - Haemorrhoids [Unknown]
